FAERS Safety Report 10860585 (Version 1)
Quarter: 2015Q1

REPORT INFORMATION
  Report Type: Spontaneous
  Country: US (occurrence: US)
  Receive Date: 20150223
  Receipt Date: 20150223
  Transmission Date: 20150721
  Serious: Yes (Life-Threatening, Other)
  Sender: FDA-Public Use
  Company Number: US-ROCHE-1530476

PATIENT
  Age: 50 Year
  Sex: Female

DRUGS (5)
  1. EPI-CELL [Concomitant]
  2. XOLAIR [Suspect]
     Active Substance: OMALIZUMAB
     Dosage: MOST RECENT DOSE PRIOR TO EVENT ANAPHYLAXIS AND HYPERSENSITIVITY
     Route: 058
     Dates: start: 20150125
  3. ZOFRAN [Concomitant]
     Active Substance: ONDANSETRON HYDROCHLORIDE
  4. XOLAIR [Suspect]
     Active Substance: OMALIZUMAB
     Indication: ASTHMA
     Route: 058
     Dates: start: 20150105
  5. BENADRYL [Concomitant]
     Active Substance: DIPHENHYDRAMINE HYDROCHLORIDE

REACTIONS (3)
  - Anaphylactic reaction [Recovered/Resolved]
  - Hypersensitivity [Recovered/Resolved]
  - Chest discomfort [Unknown]

NARRATIVE: CASE EVENT DATE: 20150125
